FAERS Safety Report 4783583-1 (Version None)
Quarter: 2005Q3

REPORT INFORMATION
  Report Type: 
  Country: None (occurrence: None)
  Receive Date: 20050928
  Receipt Date: 20050912
  Transmission Date: 20060218
  Serious: Yes (Other)
  Sender: FDA-Public Use
  Company Number: 12401

PATIENT
  Sex: 0

DRUGS (2)
  1. VINCRISTINE [Suspect]
     Dates: start: 20030601
  2. PROCARBAZINE [Suspect]
     Dates: start: 20030601

REACTIONS (2)
  - HEPATOCELLULAR DAMAGE [None]
  - JAUNDICE [None]
